FAERS Safety Report 12898834 (Version 1)
Quarter: 2016Q4

REPORT INFORMATION
  Report Type: Spontaneous
  Country: BE (occurrence: BE)
  Receive Date: 20161101
  Receipt Date: 20161101
  Transmission Date: 20170207
  Serious: Yes (Death, Hospitalization)
  Sender: FDA-Public Use
  Company Number: BE-STRIDES ARCOLAB LIMITED-2016SP016655

PATIENT

DRUGS (6)
  1. FRUSEMIDE [Suspect]
     Active Substance: FUROSEMIDE
     Indication: PRODUCT USED FOR UNKNOWN INDICATION
     Dosage: UNK
  2. DICLOFENAC [Interacting]
     Active Substance: DICLOFENAC
     Indication: PRODUCT USED FOR UNKNOWN INDICATION
     Dosage: UNK
  3. ATORVASTATIN [Interacting]
     Active Substance: ATORVASTATIN
     Indication: PRODUCT USED FOR UNKNOWN INDICATION
     Dosage: UNK
  4. PROPOFOL. [Interacting]
     Active Substance: PROPOFOL
     Indication: SEDATION
     Dosage: UNK
  5. IBUPROFEN. [Interacting]
     Active Substance: IBUPROFEN
     Indication: PRODUCT USED FOR UNKNOWN INDICATION
     Dosage: UNK
  6. COLCHICINE. [Interacting]
     Active Substance: COLCHICINE
     Indication: PRODUCT USED FOR UNKNOWN INDICATION
     Dosage: 20 MG, UNK
     Route: 048

REACTIONS (13)
  - Arrhythmia [Fatal]
  - Acute kidney injury [Unknown]
  - Pancytopenia [Unknown]
  - Sepsis [Unknown]
  - Acute lung injury [Unknown]
  - Overdose [Unknown]
  - Drug interaction [Unknown]
  - Rhabdomyolysis [Unknown]
  - Hypoxia [Fatal]
  - Multiple organ dysfunction syndrome [Unknown]
  - Acute hepatic failure [Unknown]
  - Hypertriglyceridaemia [Unknown]
  - Hyperammonaemic encephalopathy [Fatal]
